FAERS Safety Report 9288211 (Version 1)
Quarter: 2013Q2

REPORT INFORMATION
  Report Type: Spontaneous
  Country: US (occurrence: US)
  Receive Date: 20130514
  Receipt Date: 20130514
  Transmission Date: 20140414
  Serious: Yes (Other)
  Sender: FDA-Public Use
  Company Number: US-JNJFOC-20130504890

PATIENT
  Sex: 0

DRUGS (2)
  1. ACETAMINOPHEN [Suspect]
     Indication: PROCEDURAL PAIN
     Dosage: 500MG/CAPLET, TWO CAPLETS
     Route: 065
  2. PLACEBO [Suspect]
     Indication: PROCEDURAL PAIN
     Dosage: 325MG/TABLET, TWO CAPLETS
     Route: 065

REACTIONS (1)
  - Presyncope [Unknown]
